FAERS Safety Report 13129057 (Version 2)
Quarter: 2017Q2

REPORT INFORMATION
  Report Type: Other
  Country: US (occurrence: US)
  Receive Date: 20170119
  Receipt Date: 20170613
  Transmission Date: 20170830
  Serious: Yes (Death)
  Sender: FDA-Public Use
  Company Number: US-VELOXIS PHARMACEUTICALS-1062140

PATIENT
  Age: 11 Year
  Sex: Male

DRUGS (19)
  1. PREDNISONE. [Suspect]
     Active Substance: PREDNISONE
  2. VINCRISTINE SULFATE. [Suspect]
     Active Substance: VINCRISTINE SULFATE
  3. CISPLATIN. [Suspect]
     Active Substance: CISPLATIN
  4. 5-FLUOROURACIL [Suspect]
     Active Substance: FLUOROURACIL
  5. IRINOTECAN [Suspect]
     Active Substance: IRINOTECAN
  6. AMBISOME [Suspect]
     Active Substance: AMPHOTERICIN B
  7. BUSULFAN. [Suspect]
     Active Substance: BUSULFAN
  8. ALEMTUZUMAB [Suspect]
     Active Substance: ALEMTUZUMAB
  9. TRIMETHOPRIM SULFAMETHOXAZOLE [Suspect]
     Active Substance: SULFAMETHOXAZOLE\TRIMETHOPRIM
  10. GANCICLOVIR. [Suspect]
     Active Substance: GANCICLOVIR
  11. FLUDARABINE [Suspect]
     Active Substance: FLUDARABINE PHOSPHATE
  12. BEVACIZUMAB [Suspect]
     Active Substance: BEVACIZUMAB
  13. SORAFENIB [Suspect]
     Active Substance: SORAFENIB
  14. PENTAMIDINE [Suspect]
     Active Substance: PENTAMIDINE
  15. ENVARSUS XR [Suspect]
     Active Substance: TACROLIMUS
     Indication: LIVER TRANSPLANT
  16. DOXORUBICIN [Suspect]
     Active Substance: DOXORUBICIN
  17. FLUCONAZOLE. [Suspect]
     Active Substance: FLUCONAZOLE
  18. AMBISOME [Suspect]
     Active Substance: AMPHOTERICIN B
  19. CYTOGAM [Suspect]
     Active Substance: HUMAN CYTOMEGALOVIRUS IMMUNE GLOBULIN

REACTIONS (6)
  - Aspergillus infection [Unknown]
  - Toxoplasmosis [Fatal]
  - Multiple organ dysfunction syndrome [Fatal]
  - Cytomegalovirus infection [Unknown]
  - Drug administered to patient of inappropriate age [Unknown]
  - Respiratory failure [Fatal]
